FAERS Safety Report 9409387 (Version 1)
Quarter: 2013Q3

REPORT INFORMATION
  Report Type: Report from Study
  Country: JP (occurrence: JP)
  Receive Date: 20130719
  Receipt Date: 20130719
  Transmission Date: 20140515
  Serious: Yes (Other)
  Sender: FDA-Public Use
  Company Number: JP-JNJFOC-20130709620

PATIENT
  Age: 55 Year
  Sex: Male

DRUGS (10)
  1. STELARA [Suspect]
     Indication: PSORIASIS
     Route: 058
     Dates: start: 20120308
  2. STELARA [Suspect]
     Indication: PSORIASIS
     Route: 058
     Dates: start: 20120531
  3. STELARA [Suspect]
     Indication: PSORIASIS
     Route: 058
     Dates: start: 20111215
  4. STELARA [Suspect]
     Indication: PSORIASIS
     Route: 058
     Dates: start: 20110922
  5. STELARA [Suspect]
     Indication: PSORIASIS
     Route: 058
     Dates: start: 20110707
  6. STELARA [Suspect]
     Indication: PSORIASIS
     Route: 058
     Dates: start: 20110602
  7. STELARA [Suspect]
     Indication: PSORIASIS
     Route: 058
     Dates: start: 201208
  8. ISCOTIN [Concomitant]
     Indication: PROPHYLAXIS
     Route: 048
     Dates: end: 20110727
  9. OXAROL [Concomitant]
     Indication: PSORIASIS
     Route: 061
  10. MYSER [Concomitant]
     Indication: PSORIASIS
     Route: 061

REACTIONS (1)
  - Basedow^s disease [Unknown]
